FAERS Safety Report 4984929-1 (Version None)
Quarter: 2006Q2

REPORT INFORMATION
  Report Type: 
  Country: None (occurrence: None)
  Receive Date: 20060425
  Receipt Date: 20060425
  Transmission Date: 20061013
  Serious: Yes (Hospitalization)
  Sender: FDA-Public Use
  Company Number: None

PATIENT
  Age: 54 Year
  Sex: Female
  Weight: 57 kg

DRUGS (2)
  1. OXALIPLATIN 50 MG/M2 IV Q WEEK X5 [Suspect]
     Indication: RECTAL CANCER
     Dosage: 80 MG Q WEEK X 5 IV
     Route: 042
     Dates: start: 20060104, end: 20060201
  2. CAPECITABINE 725 MG/M2 PO BI.I.D. MON-FRI. X28DAYS [Suspect]
     Indication: RECTAL CANCER
     Dosage: 1150 MG. P.O. B.I.D. PO
     Route: 048
     Dates: start: 20060104, end: 20060130

REACTIONS (3)
  - BACTERIAL INFECTION [None]
  - CULTURE WOUND POSITIVE [None]
  - PELVIC ABSCESS [None]
